FAERS Safety Report 6301255-9 (Version None)
Quarter: 2009Q3

REPORT INFORMATION
  Report Type: 
  Country: None (occurrence: None)
  Receive Date: 20090806
  Receipt Date: 20090806
  Transmission Date: 20100115
  Serious: Yes (Other)
  Sender: FDA-Public Use
  Company Number: None

PATIENT
  Age: 72 Year
  Sex: Female
  Weight: 63.5036 kg

DRUGS (1)
  1. CLINDAMYCIN HCL [Suspect]
     Indication: ORAL SURGERY
     Dosage: 3 TIMES DAY FOR 10 DAYS
     Dates: start: 20090707, end: 20090715

REACTIONS (1)
  - GASTROOESOPHAGEAL REFLUX DISEASE [None]
